FAERS Safety Report 8338926-9 (Version None)
Quarter: 2012Q2

REPORT INFORMATION
  Report Type: 
  Country: None (occurrence: None)
  Receive Date: 20120506
  Receipt Date: 20120411
  Transmission Date: 20120825
  Serious: No
  Sender: FDA-Public Use
  Company Number: US-ROXANE LABORATORIES, INC.-2012-RO-01050RO

PATIENT
  Sex: Female

DRUGS (8)
  1. CODEINE SUL TAB [Suspect]
  2. AMBIEN [Concomitant]
  3. WARFARIN SODIUM [Concomitant]
  4. ASPIRIN [Concomitant]
  5. FISH OIL [Concomitant]
  6. CINNAMON [Concomitant]
  7. CHROMIUM CHLORIDE [Concomitant]
  8. VITAMIN TAB [Concomitant]

REACTIONS (1)
  - HYPERSENSITIVITY [None]
